FAERS Safety Report 9911622 (Version 1)
Quarter: 2014Q1

REPORT INFORMATION
  Report Type: Spontaneous
  Country: MX (occurrence: MX)
  Receive Date: 20140219
  Receipt Date: 20140219
  Transmission Date: 20141002
  Serious: Yes (Other)
  Sender: FDA-Public Use
  Company Number: PHHY2014MX019498

PATIENT
  Age: 78 Year
  Sex: Male

DRUGS (10)
  1. DIOVAN [Suspect]
     Indication: HYPERTENSION
     Dosage: 320 MG, DAILY
     Route: 048
     Dates: start: 201207, end: 201307
  2. PROSCAR [Concomitant]
     Dosage: UNK UKN, UNK
  3. LYRICA [Concomitant]
     Dosage: 100,25,200 UNK
  4. STALEVO [Concomitant]
     Dosage: UNK UKN, UNK
  5. CONCOR [Concomitant]
     Dosage: UNK UKN, UNK
  6. TRADOL [Concomitant]
     Dosage: UNK UKN, UNK
  7. ASPIRIN [Concomitant]
     Dosage: UNK UKN, UNK
  8. PANTOPRAZOLE [Concomitant]
     Dosage: UNK UKN, UNK
  9. DILATREND [Concomitant]
     Dosage: 2 DF (6.25), DAILY
  10. TOPAMAX [Concomitant]
     Dosage: UNK UKN, UNK

REACTIONS (8)
  - Parkinson^s disease [Unknown]
  - Myocardial ischaemia [Unknown]
  - Aneurysm [Unknown]
  - Hiatus hernia [Unknown]
  - Oesophagitis [Unknown]
  - Prostatic disorder [Unknown]
  - Back pain [Not Recovered/Not Resolved]
  - Hypertension [Not Recovered/Not Resolved]
